FAERS Safety Report 5559278-3 (Version None)
Quarter: 2007Q4

REPORT INFORMATION
  Report Type: 
  Country: None (occurrence: None)
  Receive Date: 20071214
  Receipt Date: 20070921
  Transmission Date: 20080405
  Serious: No
  Sender: FDA-Public Use
  Company Number: US-ABBOTT-07P-163-0418814-00

PATIENT
  Sex: Male
  Weight: 90.8 kg

DRUGS (5)
  1. HUMIRA [Suspect]
     Indication: COLITIS ULCERATIVE
     Route: 058
     Dates: start: 20070501
  2. SULFASALAZINE [Concomitant]
     Indication: COLITIS
     Route: 048
     Dates: start: 19970101
  3. FOLIC ACID [Concomitant]
     Indication: COLITIS
     Route: 048
     Dates: start: 19970101
  4. SERTRALINE [Concomitant]
     Indication: DEPRESSION
     Route: 048
     Dates: start: 20040101
  5. HYDROMORPHONE HYDROCHLORIDE [Concomitant]
     Indication: COLITIS
     Route: 048
     Dates: start: 20060101

REACTIONS (1)
  - POLLAKIURIA [None]
